FAERS Safety Report 20824746 (Version 2)
Quarter: 2022Q3

REPORT INFORMATION
  Report Type: Spontaneous
  Country: US (occurrence: US)
  Receive Date: 20220513
  Receipt Date: 20220706
  Transmission Date: 20221026
  Serious: No
  Sender: FDA-Public Use
  Company Number: US-BRISTOL-MYERS SQUIBB COMPANY-2022-023540

PATIENT
  Age: 62 Year
  Sex: Female
  Weight: 82.55 kg

DRUGS (7)
  1. ORENCIA [Suspect]
     Active Substance: ABATACEPT
     Indication: Psoriatic arthropathy
     Dosage: DOSE : ONE PREFILLED PEN;     FREQ : WEEKLY
     Route: 058
     Dates: start: 202201, end: 20220422
  2. FOLIC ACID [Concomitant]
     Active Substance: FOLIC ACID
     Indication: Product used for unknown indication
     Route: 065
  3. CANDESARTAN [Concomitant]
     Active Substance: CANDESARTAN
     Indication: Product used for unknown indication
     Route: 065
  4. GABAPENTIN [Concomitant]
     Active Substance: GABAPENTIN
     Indication: Product used for unknown indication
     Route: 065
  5. ATORVASTATIN [Concomitant]
     Active Substance: ATORVASTATIN
     Indication: Product used for unknown indication
     Route: 065
  6. IBUPROFEN [Concomitant]
     Active Substance: IBUPROFEN
     Indication: Product used for unknown indication
     Route: 065
  7. METHOTREXATE [Concomitant]
     Active Substance: METHOTREXATE
     Indication: Product used for unknown indication
     Dosage: SEVEN PER WEEK, ON THURSDAYS SHE TAKES FOUR IN THE MORNING AND THREE IN THE AFTERNOON
     Route: 065

REACTIONS (4)
  - Product storage error [Unknown]
  - Device malfunction [Unknown]
  - Arthritis [Unknown]
  - Product physical issue [Unknown]

NARRATIVE: CASE EVENT DATE: 20220401
